FAERS Safety Report 5409758-6 (Version None)
Quarter: 2007Q3

REPORT INFORMATION
  Report Type: 
  Country: None (occurrence: None)
  Receive Date: 20070809
  Receipt Date: 20070731
  Transmission Date: 20080115
  Serious: Yes (Death)
  Sender: FDA-Public Use
  Company Number: B0482580A

PATIENT
  Sex: Male

DRUGS (3)
  1. COMBIVIR [Suspect]
     Indication: ANTIVIRAL PROPHYLAXIS
     Dosage: 1250MG TWICE PER DAY
     Route: 048
     Dates: start: 20060118, end: 20060617
  2. NELFINAVIR [Suspect]
     Indication: ANTIVIRAL PROPHYLAXIS
     Dosage: 1250MG TWICE PER DAY
     Route: 048
     Dates: start: 20060118, end: 20060617
  3. FERROUS SULFATE TAB [Concomitant]
     Dosage: 200MG TWICE PER DAY

REACTIONS (1)
  - STILLBIRTH [None]
